FAERS Safety Report 19221967 (Version 2)
Quarter: 2021Q4

REPORT INFORMATION
  Report Type: Spontaneous
  Country: US (occurrence: US)
  Receive Date: 20210506
  Receipt Date: 20211109
  Transmission Date: 20220303
  Serious: Yes (Other)
  Sender: FDA-Public Use
  Company Number: US-GILEAD-2021-0527894

PATIENT
  Sex: Female
  Weight: 90.703 kg

DRUGS (14)
  1. ATRIPLA [Suspect]
     Active Substance: EFAVIRENZ\EMTRICITABINE\TENOFOVIR DISOPROXIL FUMARATE
     Indication: HIV infection
     Dosage: UNK
     Route: 048
     Dates: start: 2009, end: 2014
  2. COMBIVIR [Concomitant]
     Active Substance: LAMIVUDINE\ZIDOVUDINE
  3. TRIUMEQ [Concomitant]
     Active Substance: ABACAVIR SULFATE\DOLUTEGRAVIR SODIUM\LAMIVUDINE
  4. VIRAMUNE [Concomitant]
     Active Substance: NEVIRAPINE
  5. GABAPENTIN [Concomitant]
     Active Substance: GABAPENTIN
  6. LOSARTAN [Concomitant]
     Active Substance: LOSARTAN
  7. KLONOPIN [Concomitant]
     Active Substance: CLONAZEPAM
  8. ZOLOFT [Concomitant]
     Active Substance: SERTRALINE HYDROCHLORIDE
  9. SERTRALINE [Concomitant]
     Active Substance: SERTRALINE HYDROCHLORIDE
  10. TRAZODONE [Concomitant]
     Active Substance: TRAZODONE HYDROCHLORIDE
  11. STADOL [Concomitant]
     Active Substance: BUTORPHANOL TARTRATE
  12. LITHIUM [Concomitant]
     Active Substance: LITHIUM
  13. BACTRIM [Concomitant]
     Active Substance: SULFAMETHOXAZOLE\TRIMETHOPRIM
  14. DOXYCYCLINE [Concomitant]
     Active Substance: DOXYCYCLINE

REACTIONS (8)
  - Osteoporosis [Not Recovered/Not Resolved]
  - Emotional distress [Not Recovered/Not Resolved]
  - Anhedonia [Not Recovered/Not Resolved]
  - Pain [Not Recovered/Not Resolved]
  - Anxiety [Not Recovered/Not Resolved]
  - Dysstasia [Not Recovered/Not Resolved]
  - Gait disturbance [Not Recovered/Not Resolved]
  - Bone demineralisation [Unknown]

NARRATIVE: CASE EVENT DATE: 20100101
